FAERS Safety Report 14613674 (Version 1)
Quarter: 2018Q1

REPORT INFORMATION
  Report Type: Spontaneous
  Country: IT (occurrence: IT)
  Receive Date: 20180308
  Receipt Date: 20180308
  Transmission Date: 20180509
  Serious: Yes (Other)
  Sender: FDA-Public Use
  Company Number: IT-SA-2018SA036393

PATIENT
  Age: 66 Year
  Sex: Male
  Weight: 97 kg

DRUGS (4)
  1. CLOMIFENE CITRATE [Suspect]
     Active Substance: CLOMIPHENE
     Indication: SECONDARY HYPOGONADISM
     Dosage: 25MG/DIE
     Route: 065
     Dates: start: 2016
  2. CALCIUM SALT NOT SPECIFIED [Suspect]
     Active Substance: CALCIUM
     Indication: OSTEOPOROSIS
     Route: 065
     Dates: start: 2012
  3. CHOLECALCIFEROL [Suspect]
     Active Substance: CHOLECALCIFEROL
     Indication: OSTEOPOROSIS
     Route: 065
     Dates: start: 2012
  4. ALENDRONATE [Suspect]
     Active Substance: ALENDRONATE SODIUM
     Indication: OSTEOPOROSIS
     Route: 048
     Dates: start: 2012

REACTIONS (2)
  - Off label use [Unknown]
  - Drug ineffective [Unknown]
